FAERS Safety Report 7361056-X (Version None)
Quarter: 2011Q1

REPORT INFORMATION
  Report Type: 
  Country: None (occurrence: None)
  Receive Date: 20110318
  Receipt Date: 20101221
  Transmission Date: 20110831
  Serious: No
  Sender: FDA-Public Use
  Company Number: US-BAYER-2011-010448

PATIENT
  Sex: Female
  Weight: 48 kg

DRUGS (1)
  1. ASPIRIN [Suspect]
     Indication: ANALGESIC THERAPY

REACTIONS (2)
  - ABDOMINAL DISCOMFORT [None]
  - ABDOMINAL PAIN UPPER [None]
